FAERS Safety Report 18467197 (Version 1)
Quarter: 2020Q4

REPORT INFORMATION
  Report Type: Spontaneous
  Country: BR (occurrence: BR)
  Receive Date: 20201105
  Receipt Date: 20201105
  Transmission Date: 20210114
  Serious: Yes (Hospitalization, Other)
  Sender: FDA-Public Use
  Company Number: BR-ASTELLAS-2020US038839

PATIENT
  Sex: Male

DRUGS (1)
  1. MYRBETRIQ [Suspect]
     Active Substance: MIRABEGRON
     Indication: PROSTATIC DISORDER
     Route: 065

REACTIONS (3)
  - Product use in unapproved indication [Unknown]
  - Condition aggravated [Unknown]
  - Prostatic disorder [Unknown]
